FAERS Safety Report 8767557 (Version 1)
Quarter: 2012Q4

REPORT INFORMATION
  Report Type: 
  Country: US (occurrence: US)
  Receive Date: 20120903
  Receipt Date: 20120903
  Transmission Date: 20130627
  Serious: Yes (Death)
  Sender: FDA-Public Use
  Company Number: PHHY2012US075921

PATIENT
  Sex: Male

DRUGS (1)
  1. ASCRIPTIN BUFFERED CAPS UNKNOWN FORMULA [Suspect]
     Indication: MYOCARDIAL INFARCTION
     Route: 048

REACTIONS (1)
  - Death [Fatal]
